FAERS Safety Report 13546796 (Version 1)
Quarter: 2017Q2

REPORT INFORMATION
  Report Type: Spontaneous
  Country: US (occurrence: US)
  Receive Date: 20170515
  Receipt Date: 20170515
  Transmission Date: 20170830
  Serious: Yes (Other)
  Sender: FDA-Public Use
  Company Number: None

PATIENT
  Age: 36 Year
  Sex: Male
  Weight: 94.5 kg

DRUGS (8)
  1. INFLIXIMAB [Suspect]
     Active Substance: INFLIXIMAB
     Indication: COLITIS
     Dosage: EVERY 8 WEEKS INTRAVENOUS?INTRAVENOUS (NOT OTHERWISE SPECIFIED)
     Route: 042
     Dates: start: 20140615, end: 20170417
  2. BUPROPION. [Concomitant]
     Active Substance: BUPROPION
  3. SERTRALINE [Concomitant]
     Active Substance: SERTRALINE HYDROCHLORIDE
  4. CLONAZOPAM [Concomitant]
  5. VSL#3 [Concomitant]
     Active Substance: PROBIOTICS NOS
  6. PAMIPREXOLE [Concomitant]
  7. LORAZOPAM [Concomitant]
  8. MESALEMINE [Concomitant]

REACTIONS (4)
  - Skin fissures [None]
  - Dry skin [None]
  - Dermatitis [None]
  - Impaired healing [None]

NARRATIVE: CASE EVENT DATE: 20151020
